FAERS Safety Report 20092977 (Version 1)
Quarter: 2021Q4

REPORT INFORMATION
  Report Type: Spontaneous
  Country: MX (occurrence: MX)
  Receive Date: 20211120
  Receipt Date: 20211120
  Transmission Date: 20220303
  Serious: Yes (Other)
  Sender: FDA-Public Use
  Company Number: MX-NOVARTISPH-NVSC2021MX262763

PATIENT
  Sex: Female

DRUGS (1)
  1. GLIVEC [Suspect]
     Active Substance: IMATINIB MESYLATE
     Indication: Chronic myeloid leukaemia
     Dosage: 300 MG (3 X 100 MG)
     Route: 065

REACTIONS (4)
  - Walking disability [Unknown]
  - Arthropathy [Unknown]
  - Hiatus hernia [Unknown]
  - Chondropathy [Unknown]
